FAERS Safety Report 8806228 (Version 2)
Quarter: 2012Q4

REPORT INFORMATION
  Report Type: Spontaneous
  Country: US (occurrence: None)
  Receive Date: 20120918
  Receipt Date: 20121001
  Transmission Date: 20130627
  Serious: Yes (Disabling)
  Sender: FDA-Public Use
  Company Number: 2012MA011142

PATIENT
  Sex: Male

DRUGS (3)
  1. CITALOPRAM [Suspect]
     Indication: OBSESSIVE-COMPULSIVE DISORDER
     Dosage: 40 -50 MG; PO
     Route: 048
     Dates: start: 2004, end: 20120827
  2. CITALOPRAM [Suspect]
     Indication: OBSESSIVE-COMPULSIVE DISORDER
     Route: 048
  3. QUETIAPINE (QUETIAPINE) (QUETIAPINE) [Suspect]

REACTIONS (4)
  - Drug interaction [None]
  - Apathy [None]
  - Obsessive-compulsive disorder [None]
  - Condition aggravated [None]
